FAERS Safety Report 9302675 (Version 2)
Quarter: 2013Q2

REPORT INFORMATION
  Report Type: Report from Study
  Country: IT (occurrence: IT)
  Receive Date: 20130522
  Receipt Date: 20130603
  Transmission Date: 20140414
  Serious: Yes (Hospitalization)
  Sender: FDA-Public Use
  Company Number: IT-JNJFOC-20130512320

PATIENT
  Age: 77 Year
  Sex: Female
  Weight: 50 kg

DRUGS (4)
  1. PALEXIA [Suspect]
     Indication: BACK PAIN
     Route: 048
     Dates: start: 20130416, end: 20130424
  2. LANSOPRAZOLE [Concomitant]
     Indication: PRODUCT USED FOR UNKNOWN INDICATION
     Route: 048
  3. ASA [Concomitant]
     Indication: PRODUCT USED FOR UNKNOWN INDICATION
     Route: 048
     Dates: start: 201304
  4. OLMESARTAN MEDOXOMIL [Concomitant]
     Indication: PRODUCT USED FOR UNKNOWN INDICATION
     Route: 048
     Dates: start: 201304

REACTIONS (1)
  - Femur fracture [Not Recovered/Not Resolved]
